FAERS Safety Report 4488611-9 (Version None)
Quarter: 2004Q4

REPORT INFORMATION
  Report Type: 
  Country: None (occurrence: None)
  Receive Date: 20041026
  Receipt Date: 20041011
  Transmission Date: 20050328
  Serious: Yes (Hospitalization, Other)
  Sender: FDA-Public Use
  Company Number: USA041080852

PATIENT
  Age: 79 Year
  Sex: Female

DRUGS (9)
  1. FORTEO [Suspect]
     Indication: OSTEOPOROSIS
     Dates: start: 20030101
  2. PREDNISONE [Concomitant]
  3. CARDIZEM [Concomitant]
  4. SYNTHROID [Concomitant]
  5. METOPROLOL SUCCINATE [Concomitant]
  6. RANITIDINE [Concomitant]
  7. CALTRATE 600 PLUS VITAMIN D [Concomitant]
  8. MULTIVITAMIN [Concomitant]
  9. AMITRIPTYLINE HCL [Concomitant]

REACTIONS (3)
  - CRYPTOCOCCOSIS [None]
  - GLYCOPEPTIDE ANTIBIOTIC RESISTANT ENTEROCOCCAL INFECTION [None]
  - URINARY TRACT INFECTION [None]
